FAERS Safety Report 13383461 (Version 2)
Quarter: 2017Q2

REPORT INFORMATION
  Report Type: Not Available
  Country: None (occurrence: US)
  Receive Date: 20170329
  Receipt Date: 20170404
  Transmission Date: 20170830
  Serious: No
  Sender: FDA-Public Use
  Company Number: US-AKORN-52930

PATIENT
  Sex: Female

DRUGS (1)
  1. LATANOPROST. [Suspect]
     Active Substance: LATANOPROST

REACTIONS (5)
  - Eye irritation [None]
  - Cough [None]
  - Hypersensitivity [None]
  - Foreign body sensation in eyes [None]
  - Pruritus [None]
